FAERS Safety Report 5885272-9 (Version None)
Quarter: 2008Q3

REPORT INFORMATION
  Report Type: 
  Country: None (occurrence: None)
  Receive Date: 20080915
  Receipt Date: 20080915
  Transmission Date: 20090109
  Serious: Yes (Death, Hospitalization, Other)
  Sender: FDA-Public Use
  Company Number: None

PATIENT
  Age: 74 Year
  Sex: Female
  Weight: 77.1115 kg

DRUGS (2)
  1. RECLAST [Suspect]
     Indication: OSTEOPOROSIS
     Dosage: 5MG 1 IV, ONE TIME ONLY
     Route: 042
     Dates: start: 20080522, end: 20080522
  2. RECLAST [Suspect]
     Indication: SPINAL COMPRESSION FRACTURE
     Dosage: 5MG 1 IV, ONE TIME ONLY
     Route: 042
     Dates: start: 20080522, end: 20080522

REACTIONS (4)
  - CONDITION AGGRAVATED [None]
  - DISEASE COMPLICATION [None]
  - HAEMODIALYSIS [None]
  - RENAL IMPAIRMENT [None]
